FAERS Safety Report 5489549-0 (Version None)
Quarter: 2007Q4

REPORT INFORMATION
  Report Type: 
  Country: None (occurrence: None)
  Receive Date: 20071018
  Receipt Date: 20071008
  Transmission Date: 20080405
  Serious: Yes (Hospitalization)
  Sender: FDA-Public Use
  Company Number: US-ABBOTT-07P-163-0419978-00

PATIENT
  Sex: Female
  Weight: 84.444 kg

DRUGS (8)
  1. HUMIRA [Suspect]
     Indication: RHEUMATOID ARTHRITIS
     Route: 058
     Dates: start: 20070501
  2. HUMIRA [Suspect]
     Indication: PSORIASIS
  3. ZOLPIDEM TARTRATE [Concomitant]
     Indication: INSOMNIA
     Route: 048
  4. LEVOFLOXACIN [Concomitant]
     Indication: PSORIASIS
     Route: 048
  5. VICODIN [Concomitant]
     Indication: PAIN
     Dosage: 5/325
     Route: 048
  6. BETAMETHASONE DIPROPIONATE [Concomitant]
     Indication: PSORIASIS
     Route: 061
  7. PANTOPRAZOLE SODIUM [Concomitant]
     Indication: GASTROOESOPHAGEAL REFLUX DISEASE
     Route: 048
  8. EZETIMIBE [Concomitant]
     Indication: BLOOD CHOLESTEROL
     Route: 048

REACTIONS (2)
  - ACCIDENTAL EXPOSURE [None]
  - DEPRESSION [None]
